FAERS Safety Report 5694708-8 (Version None)
Quarter: 2008Q2

REPORT INFORMATION
  Report Type: 
  Country: None (occurrence: None)
  Receive Date: 20080404
  Receipt Date: 20080402
  Transmission Date: 20081010
  Serious: Yes (Life-Threatening, Hospitalization)
  Sender: FDA-Public Use
  Company Number: B0513481A

PATIENT
  Age: 79 Year
  Sex: Female

DRUGS (7)
  1. AVANDIA [Suspect]
     Dosage: 4MG PER DAY
     Route: 048
     Dates: start: 20040101
  2. ALDACTONE [Suspect]
     Indication: HYPERTENSION
     Dosage: 100MG PER DAY
     Route: 048
     Dates: start: 20040101
  3. IRBESARTAN [Suspect]
     Indication: HYPERTENSION
     Dosage: 300MG PER DAY
     Route: 048
     Dates: start: 20040101
  4. CARDYL [Suspect]
     Dosage: 40MG PER DAY
     Route: 048
     Dates: start: 20040101
  5. NOVONORM [Suspect]
     Dosage: 6MG PER DAY
     Route: 048
     Dates: start: 20040101
  6. DIGOXIN [Suspect]
     Indication: ATRIAL FIBRILLATION
     Dosage: .25MG PER DAY
     Route: 048
     Dates: start: 20040101
  7. TORSEMIDE [Suspect]
     Indication: HYPERTENSION
     Dosage: 10MG PER DAY
     Route: 048
     Dates: start: 20040101

REACTIONS (1)
  - PANCREATITIS ACUTE [None]
